FAERS Safety Report 4983223-2 (Version None)
Quarter: 2006Q2

REPORT INFORMATION
  Report Type: 
  Country: None (occurrence: None)
  Receive Date: 20060426
  Receipt Date: 20060418
  Transmission Date: 20061013
  Serious: Yes (Other)
  Sender: FDA-Public Use
  Company Number: PHNU2006DE01686

PATIENT
  Sex: Male

DRUGS (7)
  1. SANDIMMUNE [Suspect]
     Indication: HEART TRANSPLANT
     Dates: start: 19910101
  2. DIOVAN [Suspect]
     Indication: HYPERTENSION
     Dosage: 80 MG, QD
     Route: 048
     Dates: start: 20050101, end: 20060417
  3. HERZASS ^RATIOPHARM^ [Concomitant]
     Dates: start: 20050101
  4. PLAVIX [Concomitant]
     Dates: start: 20050101
  5. CORVATON [Concomitant]
     Dates: start: 20050101
  6. XIPAMIDE [Concomitant]
     Dates: start: 20050101
  7. MAGNESIUM VERLA TABLET [Concomitant]
     Dates: start: 20050101

REACTIONS (5)
  - ARTHRALGIA [None]
  - DIALYSIS [None]
  - RENAL FAILURE CHRONIC [None]
  - RENAL IMPAIRMENT [None]
  - SHOULDER PAIN [None]
